FAERS Safety Report 5425206-4 (Version None)
Quarter: 2007Q3

REPORT INFORMATION
  Report Type: 
  Country: None (occurrence: None)
  Receive Date: 20070824
  Receipt Date: 20070816
  Transmission Date: 20080115
  Serious: Yes (Hospitalization)
  Sender: FDA-Public Use
  Company Number: GB-ROCHE-509811

PATIENT
  Age: 66 Year
  Sex: Male
  Weight: 149.2 kg

DRUGS (9)
  1. ORLISTAT [Suspect]
     Indication: OBESITY
     Route: 048
     Dates: start: 20070523, end: 20070720
  2. ASPIRIN [Concomitant]
  3. ATENOLOL [Concomitant]
  4. RAMIPRIL [Concomitant]
  5. SIMVASTATIN [Concomitant]
  6. FRUSEMIDE [Concomitant]
  7. WARFARIN SODIUM [Concomitant]
  8. METFORMIN HCL [Concomitant]
  9. DIGOXIN [Concomitant]

REACTIONS (3)
  - DYSPNOEA [None]
  - EJECTION FRACTION ABNORMAL [None]
  - PULMONARY OEDEMA [None]
